FAERS Safety Report 19039341 (Version 1)
Quarter: 2021Q1

REPORT INFORMATION
  Report Type: Spontaneous
  Country: US (occurrence: US)
  Receive Date: 20210322
  Receipt Date: 20210322
  Transmission Date: 20210420
  Serious: No
  Sender: FDA-Public Use
  Company Number: US-TEVA-2021-US-1892023

PATIENT
  Sex: Female

DRUGS (1)
  1. VANDAZOLE [Suspect]
     Active Substance: METRONIDAZOLE
     Indication: BACTERIAL VAGINOSIS
     Dosage: 7.5 MG IN 1 G
     Route: 067
     Dates: end: 20210118

REACTIONS (17)
  - Bladder pain [Unknown]
  - Pelvic discomfort [Unknown]
  - Uterine enlargement [Unknown]
  - Abdominal pain [Unknown]
  - Vaginal odour [Unknown]
  - Vulvovaginal pain [Unknown]
  - Labia enlarged [Unknown]
  - Urinary incontinence [Unknown]
  - Vulvovaginal discomfort [Unknown]
  - Product substitution issue [Unknown]
  - Pollakiuria [Unknown]
  - Uterine pain [Unknown]
  - Constipation [Unknown]
  - Micturition urgency [Unknown]
  - Abdominal distension [Unknown]
  - Decreased appetite [Unknown]
  - Back pain [Unknown]

NARRATIVE: CASE EVENT DATE: 20210118
